FAERS Safety Report 15735754 (Version 1)
Quarter: 2018Q4

REPORT INFORMATION
  Report Type: Report from Study
  Country: IT (occurrence: IT)
  Receive Date: 20181218
  Receipt Date: 20181218
  Transmission Date: 20190205
  Serious: Yes (Other)
  Sender: FDA-Public Use
  Company Number: IT-PFIZER INC-2018515543

PATIENT
  Sex: Female

DRUGS (6)
  1. CYCLOPHOSPHAMIDE. [Suspect]
     Active Substance: CYCLOPHOSPHAMIDE
     Indication: HER-2 POSITIVE BREAST CANCER
     Dosage: 600 MG/M2, CYCLIC, (AYS 1 AND 8 EVERY 4 WEEKS FOR THE FINAL THREE CYCLES)
  2. PACLITAXEL. [Suspect]
     Active Substance: PACLITAXEL
     Dosage: 175 MG/M2, CYCLIC, (EVERY 3 WEEKS FOR FOUR CYCLES)
  3. FLUOROURACIL. [Suspect]
     Active Substance: FLUOROURACIL
     Indication: HER-2 POSITIVE BREAST CANCER
     Dosage: 600 MG/M2, CYCLIC, (DAYS 1 AND 8 EVERY 4 WEEKS FOR THE FINAL THREE CYCLES)
  4. DOXORUBICIN HCL [Suspect]
     Active Substance: DOXORUBICIN HYDROCHLORIDE
     Indication: HER-2 POSITIVE BREAST CANCER
     Dosage: 60 MG/M2, CYCLIC, (EVERY 3 WEEKS FOR THREE CYCLES)
     Route: 042
  5. PACLITAXEL. [Suspect]
     Active Substance: PACLITAXEL
     Indication: HER-2 POSITIVE BREAST CANCER
     Dosage: 150 MG/M2, (EVERY 3 WEEKS FOR THREE CYCLES)
     Route: 042
  6. METHOTREXATE. [Suspect]
     Active Substance: METHOTREXATE
     Indication: HER-2 POSITIVE BREAST CANCER
     Dosage: 40 MG/M2, CYCLIC, (DAYS 1 AND 8 EVERY 4 WEEKS FOR THE FINAL THREE CYCLES)

REACTIONS (1)
  - Deep vein thrombosis [Unknown]
